FAERS Safety Report 9321333 (Version 3)
Quarter: 2013Q3

REPORT INFORMATION
  Report Type: Spontaneous
  Country: FR (occurrence: None)
  Receive Date: 20130528
  Receipt Date: 20130702
  Transmission Date: 20140515
  Serious: Yes (Hospitalization, Other)
  Sender: FDA-Public Use
  Company Number: AUR-APL-2013-04286

PATIENT
  Age: 17 Year
  Sex: Female
  Weight: 64.1 kg

DRUGS (3)
  1. CEFPODOXIME [Suspect]
     Indication: PRODUCT USED FOR UNKNOWN INDICATION
     Dosage: MOE THAN 10G OR 156  MG/KG,
  2. PARACETAMOL (PARACETAMOL) [Suspect]
     Indication: PRODUCT USED FOR UNKNOWN INDICATION
     Dosage: MORE THAN 10G OR 156  MG/KG,
     Route: 048
  3. ALPRAZOLAM [Suspect]
     Indication: PRODUCT USED FOR UNKNOWN INDICATION

REACTIONS (5)
  - Renal failure acute [None]
  - Poisoning deliberate [None]
  - Hepatic failure [None]
  - Hepatocellular injury [None]
  - Renal tubular necrosis [None]
